FAERS Safety Report 10414409 (Version 2)
Quarter: 2015Q4

REPORT INFORMATION
  Report Type: Spontaneous
  Country: DE (occurrence: DE)
  Receive Date: 20140828
  Receipt Date: 20151026
  Transmission Date: 20160304
  Serious: Yes (Hospitalization, Other)
  Sender: FDA-Public Use
  Company Number: DE-ALEXION PHARMACEUTICALS INC-A201403182

PATIENT
  Age: 29 Year
  Sex: Female

DRUGS (1)
  1. SOLIRIS [Suspect]
     Active Substance: ECULIZUMAB
     Indication: PAROXYSMAL NOCTURNAL HAEMOGLOBINURIA
     Dosage: 900 MG, Q2W
     Route: 042
     Dates: start: 200709

REACTIONS (30)
  - Haemolysis [Unknown]
  - Therapeutic response unexpected [Unknown]
  - Productive cough [Unknown]
  - Pyrexia [Unknown]
  - General physical condition abnormal [Unknown]
  - Fatigue [Unknown]
  - Productive cough [Unknown]
  - Anaemia [Unknown]
  - Headache [Unknown]
  - Chills [Unknown]
  - Gastrointestinal infection [Unknown]
  - Upper respiratory tract infection [Unknown]
  - Fatigue [Unknown]
  - Throat irritation [Unknown]
  - Cholelithiasis [Unknown]
  - Chromaturia [Unknown]
  - Pyrexia [Unknown]
  - Abdominal discomfort [Unknown]
  - Pyrexia [Recovered/Resolved]
  - Chromaturia [Unknown]
  - Pyrexia [Recovered/Resolved]
  - Cholecystitis acute [Unknown]
  - Haemolysis [Unknown]
  - Influenza like illness [Unknown]
  - Haemolysis [Unknown]
  - Erythropoiesis abnormal [Unknown]
  - Rhinitis [Unknown]
  - Productive cough [Unknown]
  - Tonsillar disorder [Unknown]
  - Hyperkalaemia [Unknown]

NARRATIVE: CASE EVENT DATE: 20071129
